FAERS Safety Report 9699284 (Version 1)
Quarter: 2013Q4

REPORT INFORMATION
  Report Type: Spontaneous
  Country: US (occurrence: US)
  Receive Date: 20131120
  Receipt Date: 20131120
  Transmission Date: 20140711
  Serious: No
  Sender: FDA-Public Use
  Company Number: US-GILEAD-2008-0015411

PATIENT
  Sex: Male

DRUGS (9)
  1. LETAIRIS [Suspect]
     Indication: PULMONARY ARTERIAL HYPERTENSION
     Route: 048
     Dates: start: 20071128
  2. RESTORIL [Concomitant]
  3. LASIX [Concomitant]
  4. NEXIUM [Concomitant]
  5. REVATIO [Concomitant]
  6. LOPRESSOR [Concomitant]
  7. COLACE [Concomitant]
  8. ASPIRIN [Concomitant]
  9. MULTIVITAMIN [Concomitant]

REACTIONS (1)
  - Oedema peripheral [Unknown]
